FAERS Safety Report 6894375-1 (Version None)
Quarter: 2010Q3

REPORT INFORMATION
  Report Type: 
  Country: None (occurrence: None)
  Receive Date: 20100727
  Receipt Date: 20100709
  Transmission Date: 20110219
  Serious: Yes (Other)
  Sender: FDA-Public Use
  Company Number: DSJ-2010-11271

PATIENT
  Age: 70 Year
  Sex: Male

DRUGS (3)
  1. OLMESARTAN MEDOXOMIL [Suspect]
     Indication: HYPERTENSION
     Dosage: 20 MG,PER ORAL
     Route: 048
  2. PLAVIX [Suspect]
     Indication: PRODUCT USED FOR UNKNOWN INDICATION
     Dosage: 75 MG
  3. RASILEZ (ALISKIREN-) (ALISKIREN) [Concomitant]

REACTIONS (2)
  - ANGINA PECTORIS [None]
  - CEREBRAL HAEMORRHAGE [None]
